FAERS Safety Report 9297722 (Version 1)
Quarter: 2013Q2

REPORT INFORMATION
  Report Type: Spontaneous
  Country: US (occurrence: US)
  Receive Date: 20130520
  Receipt Date: 20130520
  Transmission Date: 20140414
  Serious: Yes (Death, Hospitalization)
  Sender: FDA-Public Use
  Company Number: PHEH2013US010855

PATIENT
  Age: 85 Year
  Sex: Male

DRUGS (2)
  1. FORADIL [Suspect]
     Dosage: 1 DF, BID
  2. ASMANEX [Suspect]
     Dosage: 220 UG, BID

REACTIONS (4)
  - Hepatic cancer [Fatal]
  - Jaundice [Fatal]
  - Pain [Fatal]
  - Pneumonia [Fatal]
